FAERS Safety Report 9850848 (Version 2)
Quarter: 2014Q3

REPORT INFORMATION
  Report Type: Report from Study
  Country: US (occurrence: KR)
  Receive Date: 20140128
  Receipt Date: 20140703
  Transmission Date: 20150326
  Serious: Yes (Hospitalization)
  Sender: FDA-Public Use
  Company Number: KR-FRI-1000053174

PATIENT
  Age: 58 Year
  Sex: Male
  Weight: 64 kg

DRUGS (27)
  1. URSA [Concomitant]
     Dates: start: 20130724
  2. ERDOS [Concomitant]
     Dates: start: 20130925, end: 20130930
  3. PRIMALAN [Concomitant]
     Active Substance: MEQUITAZINE
     Dates: start: 20131120, end: 20131125
  4. SOLONDO [Concomitant]
     Active Substance: PREDNISOLONE
     Dates: start: 20130925, end: 20130930
  5. COUGH SYRUP [Concomitant]
     Active Substance: DEXTROMETHORPHAN HYDROBROMIDE\GUAIFENESIN
     Dates: start: 20131120
  6. MUCOPECT [Concomitant]
     Dates: start: 20131120, end: 20131125
  7. MUCOTHIOL-S [Concomitant]
     Dates: start: 20130922, end: 20130926
  8. TAMIPOOL [Concomitant]
     Dates: start: 20130920, end: 20130920
  9. AVENTRO [Concomitant]
     Dates: start: 20130805, end: 20130805
  10. VENTOLIN NEBULE [Concomitant]
     Dates: start: 20130805, end: 20130805
  11. SERETIDEDISKUS [Concomitant]
     Dates: start: 20071001
  12. VENTOLIN [Concomitant]
     Active Substance: ALBUTEROL SULFATE
     Dates: start: 20040430
  13. AZEPTIN [Concomitant]
     Dates: start: 20130805, end: 20130808
  14. BAMBEC [Concomitant]
     Dates: start: 20130403
  15. MAGNESIUM OXIDE. [Concomitant]
     Active Substance: MAGNESIUM OXIDE
     Dates: start: 20131120
  16. NEOMEDICOUGH [Concomitant]
     Dates: start: 20131120, end: 20131125
  17. SEKARON [Concomitant]
     Dates: start: 20130925
  18. SPIRIVA [Concomitant]
     Active Substance: TIOTROPIUM BROMIDE MONOHYDRATE
     Dates: start: 20050603
  19. THIAMINE HCL [Concomitant]
     Dates: start: 20130920, end: 20130922
  20. IBUPROFEN. [Concomitant]
     Active Substance: IBUPROFEN
     Dates: start: 20131120, end: 20131125
  21. LAMINA-G [Concomitant]
     Dates: start: 20131017
  22. SKAD [Concomitant]
     Dates: start: 20130925, end: 20131009
  23. ASTHTEROL [Concomitant]
     Dates: start: 20130919, end: 20130920
  24. STILLEN [Concomitant]
     Dates: start: 20131017, end: 20131017
  25. ROFLUMILAST [Suspect]
     Active Substance: ROFLUMILAST
     Indication: CHRONIC OBSTRUCTIVE PULMONARY DISEASE
     Dosage: 500 MCG
     Route: 048
     Dates: start: 20130724
  26. MACPERAN [Concomitant]
     Dates: start: 20130919, end: 20130919
  27. MENOCTYL [Concomitant]
     Dates: start: 20131120

REACTIONS (2)
  - Hepatitis alcoholic [Recovered/Resolved]
  - Abdominal discomfort [Unknown]

NARRATIVE: CASE EVENT DATE: 20130919
